FAERS Safety Report 5836741-9 (Version None)
Quarter: 2008Q3

REPORT INFORMATION
  Report Type: 
  Country: None (occurrence: None)
  Receive Date: 20080806
  Receipt Date: 20080806
  Transmission Date: 20090109
  Serious: Yes (Hospitalization)
  Sender: FDA-Public Use
  Company Number: None

PATIENT
  Age: 67 Year
  Sex: Male
  Weight: 39.4629 kg

DRUGS (1)
  1. OXALIPLATIN [Suspect]
     Indication: OESOPHAGEAL CARCINOMA
     Dosage: 65MG/M2 Q14 DAYS IV
     Route: 042
     Dates: start: 20080115, end: 20080519

REACTIONS (8)
  - COUGH [None]
  - DYSPNOEA [None]
  - DYSPNOEA EXERTIONAL [None]
  - HAEMOGLOBIN DECREASED [None]
  - LUNG DISORDER [None]
  - OXYGEN SATURATION DECREASED [None]
  - PNEUMONITIS [None]
  - WHITE BLOOD CELL COUNT DECREASED [None]
